FAERS Safety Report 12849744 (Version 1)
Quarter: 2016Q4

REPORT INFORMATION
  Report Type: Spontaneous
  Country: AU (occurrence: AU)
  Receive Date: 20161014
  Receipt Date: 20161014
  Transmission Date: 20170207
  Serious: Yes (Other)
  Sender: FDA-Public Use
  Company Number: AU-JNJFOC-20161004926

PATIENT

DRUGS (13)
  1. PRASUGREL [Suspect]
     Active Substance: PRASUGREL
     Indication: PERCUTANEOUS CORONARY INTERVENTION
     Route: 065
  2. ABCIXIMAB [Suspect]
     Active Substance: ABCIXIMAB
     Indication: PERCUTANEOUS CORONARY INTERVENTION
     Route: 065
  3. HEPARIN [Suspect]
     Active Substance: HEPARIN SODIUM
     Indication: PERCUTANEOUS CORONARY INTERVENTION
     Route: 042
  4. CLOPIDOGREL [Suspect]
     Active Substance: CLOPIDOGREL BISULFATE
     Indication: PERCUTANEOUS CORONARY INTERVENTION
     Route: 065
  5. ABCIXIMAB [Suspect]
     Active Substance: ABCIXIMAB
     Indication: ACUTE CORONARY SYNDROME
     Route: 065
  6. TICAGRELOR [Suspect]
     Active Substance: TICAGRELOR
     Indication: PERCUTANEOUS CORONARY INTERVENTION
     Route: 065
  7. PRASUGREL [Suspect]
     Active Substance: PRASUGREL
     Indication: PERCUTANEOUS CORONARY INTERVENTION
     Route: 065
  8. ABCIXIMAB [Suspect]
     Active Substance: ABCIXIMAB
     Indication: PERCUTANEOUS CORONARY INTERVENTION
     Dosage: 0.125 UG/KG/MIN (MAX 10UG/MIN) FOR 12 HOURS
     Route: 065
  9. TICAGRELOR [Suspect]
     Active Substance: TICAGRELOR
     Indication: PERCUTANEOUS CORONARY INTERVENTION
     Route: 065
  10. ABCIXIMAB [Suspect]
     Active Substance: ABCIXIMAB
     Indication: ACUTE CORONARY SYNDROME
     Dosage: 0.125 UG/KG/MIN (MAX 10UG/MIN) FOR 12 HOURS
     Route: 065
  11. CLOPIDOGREL [Suspect]
     Active Substance: CLOPIDOGREL BISULFATE
     Indication: PERCUTANEOUS CORONARY INTERVENTION
     Route: 065
  12. ASPIRIN. [Suspect]
     Active Substance: ASPIRIN
     Indication: PERCUTANEOUS CORONARY INTERVENTION
     Route: 065
  13. ASPIRIN. [Suspect]
     Active Substance: ASPIRIN
     Indication: PERCUTANEOUS CORONARY INTERVENTION
     Route: 065

REACTIONS (3)
  - Haemorrhage [Unknown]
  - Thrombocytopenia [Unknown]
  - Myocardial infarction [Unknown]
